FAERS Safety Report 9330217 (Version 1)
Quarter: 2013Q2

REPORT INFORMATION
  Report Type: Spontaneous
  Country: BE (occurrence: BE)
  Receive Date: 20130604
  Receipt Date: 20130604
  Transmission Date: 20140414
  Serious: Yes (Life-Threatening, Hospitalization)
  Sender: FDA-Public Use
  Company Number: BE-B.I. PHARMACEUTICALS,INC./RIDGEFIELD-2013-BL-00275BL

PATIENT
  Age: 83 Year
  Sex: Female

DRUGS (2)
  1. TRAJENTA [Suspect]
     Dates: start: 201305
  2. GLUCOPHAGE [Concomitant]
     Dosage: 1000 MG

REACTIONS (1)
  - Cardiac arrest [Unknown]
